FAERS Safety Report 17717656 (Version 1)
Quarter: 2020Q2

REPORT INFORMATION
  Report Type: Spontaneous
  Country: US (occurrence: US)
  Receive Date: 20200428
  Receipt Date: 20200428
  Transmission Date: 20200714
  Serious: No
  Sender: FDA-Public Use
  Company Number: US-CYCLE PHARMACEUTICALS LTD-2019-CYC-000017

PATIENT
  Age: 8 Year
  Sex: Male

DRUGS (1)
  1. NITYR [Suspect]
     Active Substance: NITISINONE
     Indication: TYROSINAEMIA
     Dosage: 22 MG IN THE AM AND 25 MG IN THE PM, DAILY
     Route: 048
     Dates: start: 20191026, end: 2020

REACTIONS (4)
  - Laboratory test abnormal [Recovered/Resolved]
  - Amino acid level increased [Recovered/Resolved]
  - Rash [Recovered/Resolved]
  - Constipation [Not Recovered/Not Resolved]

NARRATIVE: CASE EVENT DATE: 202001
